FAERS Safety Report 14505207 (Version 1)
Quarter: 2018Q1

REPORT INFORMATION
  Report Type: Report from Study
  Country: BR (occurrence: BR)
  Receive Date: 20180208
  Receipt Date: 20180208
  Transmission Date: 20180509
  Serious: Yes (Other)
  Sender: FDA-Public Use
  Company Number: PHHY2017BR175317

PATIENT
  Sex: Female
  Weight: 57.8 kg

DRUGS (3)
  1. ACLASTA [Suspect]
     Active Substance: ZOLEDRONIC ACID
     Indication: PRODUCT USED FOR UNKNOWN INDICATION
     Dosage: 1 DF (5 MG/100 ML), Q12MO
     Route: 042
     Dates: start: 20170814, end: 20170814
  2. SERTRALINE [Concomitant]
     Active Substance: SERTRALINE HYDROCHLORIDE
     Indication: ANXIETY
     Route: 065
  3. ROSUVASTATIN. [Concomitant]
     Active Substance: ROSUVASTATIN
     Indication: BLOOD CHOLESTEROL
     Route: 065

REACTIONS (10)
  - Infarction [Unknown]
  - Viral infection [Recovered/Resolved]
  - Spinal pain [Unknown]
  - Malaise [Recovered/Resolved]
  - Fear [Unknown]
  - Pain [Recovering/Resolving]
  - Arthralgia [Not Recovered/Not Resolved]
  - Drug intolerance [Unknown]
  - Pyrexia [Recovered/Resolved]
  - Arthritis [Not Recovered/Not Resolved]
